FAERS Safety Report 6956888-3 (Version None)
Quarter: 2010Q3

REPORT INFORMATION
  Report Type: 
  Country: None (occurrence: None)
  Receive Date: 20100830
  Receipt Date: 20100603
  Transmission Date: 20110219
  Serious: No
  Sender: FDA-Public Use
  Company Number: US-ALLERGAN-1007272US

PATIENT
  Age: 50 Year
  Sex: Female

DRUGS (1)
  1. SANCTURA XR [Suspect]
     Indication: PRODUCT USED FOR UNKNOWN INDICATION
     Dosage: 60 MG, QD
     Route: 048
     Dates: start: 20100519, end: 20100520

REACTIONS (3)
  - INSOMNIA [None]
  - PALPITATIONS [None]
  - VISION BLURRED [None]
